FAERS Safety Report 16162747 (Version 1)
Quarter: 2019Q2

REPORT INFORMATION
  Report Type: Spontaneous
  Country: None (occurrence: FR)
  Receive Date: 20190405
  Receipt Date: 20190405
  Transmission Date: 20190711
  Serious: Yes (Other)
  Sender: FDA-Public Use
  Company Number: FR-PROVELL PHARMACEUTICALS-2065363

PATIENT
  Age: 62 Year
  Sex: Female

DRUGS (1)
  1. EUTHYROX [Suspect]
     Active Substance: LEVOTHYROXINE SODIUM
     Indication: THYROID DISORDER
     Dates: start: 201703, end: 201711

REACTIONS (17)
  - Asthenia [Recovered/Resolved]
  - Dizziness [Recovered/Resolved]
  - Treatment noncompliance [None]
  - Nausea [Recovered/Resolved]
  - Hypertension [Recovered/Resolved]
  - Gastrointestinal disorder [Recovered/Resolved]
  - Feeling abnormal [Recovered/Resolved]
  - Heart rate decreased [Recovering/Resolving]
  - Insomnia [Recovered/Resolved]
  - Blood thyroid stimulating hormone increased [Recovered/Resolved]
  - Initial insomnia [Recovered/Resolved]
  - Fatigue [Recovered/Resolved]
  - Tremor [Recovered/Resolved]
  - General physical health deterioration [Recovered/Resolved]
  - Feeling cold [Recovered/Resolved]
  - Malaise [Recovered/Resolved]
  - Blood cholesterol increased [Recovered/Resolved]

NARRATIVE: CASE EVENT DATE: 2017
